FAERS Safety Report 7095401-X (Version None)
Quarter: 2010Q4

REPORT INFORMATION
  Report Type: 
  Country: None (occurrence: None)
  Receive Date: 20101111
  Receipt Date: 20101105
  Transmission Date: 20110411
  Serious: Yes (Death)
  Sender: FDA-Public Use
  Company Number: US-US-EMD SERONO, INC.-7025094

PATIENT
  Sex: Female

DRUGS (7)
  1. REBIF [Suspect]
     Indication: MULTIPLE SCLEROSIS
     Route: 058
     Dates: start: 20090908, end: 20101031
  2. NEURONTIN [Concomitant]
     Dates: end: 20101031
  3. NORCO [Concomitant]
     Dates: end: 20101031
  4. CELEXA [Concomitant]
     Dates: end: 20101031
  5. INSULIN [Concomitant]
     Dates: end: 20101031
  6. ATIVAN [Concomitant]
     Dates: end: 20101031
  7. DESYREL [Concomitant]
     Dates: end: 20101031

REACTIONS (1)
  - DEATH [None]
